FAERS Safety Report 6096440-8 (Version None)
Quarter: 2009Q1

REPORT INFORMATION
  Report Type: 
  Country: None (occurrence: None)
  Receive Date: 20090227
  Receipt Date: 20090121
  Transmission Date: 20090719
  Serious: No
  Sender: FDA-Public Use
  Company Number: A0761402A

PATIENT
  Age: 46 Year
  Sex: Female
  Weight: 68.2 kg

DRUGS (3)
  1. LAMICTAL [Suspect]
     Indication: BIPOLAR DISORDER
     Dosage: 150MG PER DAY
     Route: 048
     Dates: start: 20080701
  2. CYMBALTA [Concomitant]
  3. SYMBYAX [Concomitant]
     Indication: BIPOLAR II DISORDER
     Dates: start: 20080827

REACTIONS (2)
  - DYSPHAGIA [None]
  - TREMOR [None]
